FAERS Safety Report 24356871 (Version 1)
Quarter: 2024Q3

REPORT INFORMATION
  Report Type: Spontaneous
  Country: CA (occurrence: None)
  Receive Date: 20240924
  Receipt Date: 20240924
  Transmission Date: 20241016
  Serious: Yes (Other)
  Sender: ORION
  Company Number: CA-PFIZER INC-202400259036

PATIENT
  Age: 63 Year
  Sex: Female

DRUGS (4)
  1. METHOTREXATE [Suspect]
     Active Substance: METHOTREXATE
     Indication: Rheumatoid arthritis
  2. ERELZI [Suspect]
     Active Substance: ETANERCEPT-SZZS
     Indication: Rheumatoid arthritis
  3. ERELZI [Suspect]
     Active Substance: ETANERCEPT-SZZS
  4. ERELZI [Suspect]
     Active Substance: ETANERCEPT-SZZS

REACTIONS (1)
  - Rheumatoid arthritis [Unknown]
